FAERS Safety Report 6425086-4 (Version None)
Quarter: 2009Q4

REPORT INFORMATION
  Report Type: 
  Country: None (occurrence: None)
  Receive Date: 20091103
  Receipt Date: 20091022
  Transmission Date: 20100525
  Serious: Yes (Life-Threatening, Hospitalization)
  Sender: FDA-Public Use
  Company Number: FR-PFIZER INC-2009286841

PATIENT
  Age: 63 Year
  Sex: Male

DRUGS (4)
  1. ZYVOXID [Suspect]
     Indication: ENDOCARDITIS
     Dosage: 600 MG, 2X/DAY
     Route: 041
     Dates: start: 20090512, end: 20090526
  2. LASILIX [Concomitant]
     Indication: ACUTE PULMONARY OEDEMA
  3. VANCOMYCIN [Concomitant]
     Indication: ENDOCARDITIS
     Dosage: UNK
     Dates: end: 20090501
  4. GENTAMICIN [Concomitant]
     Indication: ENDOCARDITIS
     Dosage: UNK
     Dates: end: 20090501

REACTIONS (1)
  - HEPATITIS FULMINANT [None]
